FAERS Safety Report 13762308 (Version 2)
Quarter: 2017Q4

REPORT INFORMATION
  Report Type: Report from Study
  Country: BR (occurrence: BR)
  Receive Date: 20170718
  Receipt Date: 20171016
  Transmission Date: 20180320
  Serious: Yes (Other)
  Sender: FDA-Public Use
  Company Number: BR-UCBSA-2016042734

PATIENT
  Age: 32 Year
  Sex: Female
  Weight: 75 kg

DRUGS (6)
  1. DRAMAMINE [Concomitant]
     Active Substance: DIMENHYDRINATE
     Indication: VERTIGO
     Dosage: UNK
     Route: 042
  2. BROMOPRIDE [Concomitant]
     Active Substance: BROMOPRIDE
     Indication: NAUSEA
     Dosage: UNK
     Route: 048
     Dates: start: 20161106, end: 2016
  3. FLUNARIZINE DIHYDROCHLORIDE [Concomitant]
     Active Substance: FLUNARIZINE HYDROCHLORIDE
     Indication: LABYRINTHITIS
  4. CERTOLIZUMAB PEGOL [Suspect]
     Active Substance: CERTOLIZUMAB PEGOL
     Indication: RHEUMATOID ARTHRITIS
     Dosage: 400 MG, EV 2 WEEKS(QOW)
     Dates: start: 20161024, end: 20161121
  5. METHOTREXATE. [Concomitant]
     Active Substance: METHOTREXATE
     Indication: RHEUMATOID ARTHRITIS
     Dosage: 1 DF, WEEKLY (QW)
     Route: 048
     Dates: start: 201505
  6. PREDNISONE. [Concomitant]
     Active Substance: PREDNISONE
     Indication: RHEUMATOID ARTHRITIS
     Dosage: 10 MG, ONCE DAILY (QD)
     Route: 048
     Dates: start: 201505

REACTIONS (7)
  - Loss of consciousness [Unknown]
  - Nausea [Recovering/Resolving]
  - Suicidal ideation [Unknown]
  - Labyrinthitis [Recovered/Resolved]
  - Feeling of despair [Unknown]
  - Vertigo [Not Recovered/Not Resolved]
  - Fear [Unknown]

NARRATIVE: CASE EVENT DATE: 201611
